FAERS Safety Report 12286558 (Version 1)
Quarter: 2016Q2

REPORT INFORMATION
  Report Type: Other
  Country: GB (occurrence: GB)
  Receive Date: 20160420
  Receipt Date: 20160420
  Transmission Date: 20160815
  Serious: Yes (Life-Threatening, Hospitalization)
  Sender: FDA-Public Use
  Company Number: GB-CIPLA LTD.-2016GB03837

PATIENT

DRUGS (13)
  1. REDOXON MULTIVITAMINS [Concomitant]
     Dosage: UNK
     Route: 065
  2. CLONAZEPAM. [Suspect]
     Active Substance: CLONAZEPAM
     Indication: AGITATION
     Dosage: 4 MG, DAILY IN FOUR DOSES
     Route: 048
     Dates: start: 20160217
  3. OMEGA-3 FISH OIL [Concomitant]
     Active Substance: FISH OIL\OMEGA-3 FATTY ACIDS
     Dosage: UNK
     Route: 065
  4. PHENERGAN [Suspect]
     Active Substance: PROMETHAZINE HYDROCHLORIDE
     Indication: AGITATION
     Dosage: UNK, UNSURE, PERHAPS 25 MG DAILY
     Route: 048
     Dates: start: 20160217
  5. ASPIRIN. [Concomitant]
     Active Substance: ASPIRIN
     Dosage: UNK
     Route: 065
  6. HALOPERIDOL. [Concomitant]
     Active Substance: HALOPERIDOL
     Dosage: UNK
     Route: 065
  7. EPILIM [Suspect]
     Active Substance: VALPROATE SODIUM
     Indication: HYPOMANIA
     Dosage: UNK, UNSURE BUT MAYBE IN THE RANGE OF 0.5-1G DAILY
     Route: 048
     Dates: start: 20160217
  8. ANTIHISTAMINES [Concomitant]
     Active Substance: ANTIHISTAMINES NOS
     Dosage: UNK
     Route: 065
  9. PROMETHAZINE [Suspect]
     Active Substance: PROMETHAZINE\PROMETHAZINE HYDROCHLORIDE
     Dosage: UNK
     Route: 048
     Dates: start: 20160217
  10. OLANZAPINE. [Suspect]
     Active Substance: OLANZAPINE
     Indication: HYPOMANIA
     Dosage: 10 MG, QD, NOCTE
     Route: 048
     Dates: start: 20160217
  11. FLUCLOXACILLIN [Concomitant]
     Active Substance: FLUCLOXACILLIN
     Dosage: UNK
     Route: 065
     Dates: start: 20160401
  12. ANTIBIOTICS [Concomitant]
     Active Substance: UNSPECIFIED INGREDIENT
     Dosage: UNK
     Route: 065
  13. INNOHEP [Concomitant]
     Active Substance: TINZAPARIN SODIUM
     Dosage: UNK
     Route: 065

REACTIONS (12)
  - Oedema peripheral [Unknown]
  - Liver injury [Not Recovered/Not Resolved]
  - Aggression [Not Recovered/Not Resolved]
  - Rash maculo-papular [Unknown]
  - Verbal abuse [Not Recovered/Not Resolved]
  - Drug interaction [Unknown]
  - Cerebrovascular accident [Unknown]
  - Pruritus [Unknown]
  - Breathing-related sleep disorder [Unknown]
  - Drug hypersensitivity [Not Recovered/Not Resolved]
  - Reaction to drug excipients [Unknown]
  - Localised infection [Unknown]

NARRATIVE: CASE EVENT DATE: 20160217
